FAERS Safety Report 19656031 (Version 1)
Quarter: 2021Q3

REPORT INFORMATION
  Report Type: Spontaneous
  Country: US (occurrence: US)
  Receive Date: 20210804
  Receipt Date: 20210804
  Transmission Date: 20211014
  Serious: Yes (Other)
  Sender: FDA-Public Use
  Company Number: US-ASTRAZENECA-2021A655237

PATIENT
  Sex: Male

DRUGS (6)
  1. CABAZITAXEL [Concomitant]
     Active Substance: CABAZITAXEL
  2. PROVENGE [Concomitant]
     Active Substance: SIPULEUCEL-T
  3. OLAPARIB. [Suspect]
     Active Substance: OLAPARIB
     Indication: METASTATIC NEOPLASM
     Route: 048
  4. ABIRATERONE. [Concomitant]
     Active Substance: ABIRATERONE ACETATE
  5. DOCETAXEL. [Concomitant]
     Active Substance: DOCETAXEL
  6. ADT [Concomitant]
     Active Substance: AMITRIPTYLINE HYDROCHLORIDE

REACTIONS (1)
  - Malignant neoplasm progression [Unknown]
